FAERS Safety Report 16645833 (Version 3)
Quarter: 2019Q4

REPORT INFORMATION
  Report Type: Report from Study
  Country: None (occurrence: CA)
  Receive Date: 20190730
  Receipt Date: 20191030
  Transmission Date: 20200122
  Serious: Yes (Other)
  Sender: FDA-Public Use
  Company Number: CA-ABBVIE-19K-028-2868049-00

PATIENT
  Age: 14 Year
  Sex: Female
  Weight: 54.7 kg

DRUGS (3)
  1. HUMIRA [Suspect]
     Active Substance: ADALIMUMAB
     Indication: CROHN^S DISEASE
     Route: 058
     Dates: start: 20140503, end: 20190904
  2. AZITHROMYCIN ANHYDROUS. [Concomitant]
     Active Substance: AZITHROMYCIN ANHYDROUS
     Indication: CROHN^S DISEASE
     Route: 048
     Dates: start: 20120509
  3. TACROLIMUS. [Concomitant]
     Active Substance: TACROLIMUS
     Indication: PITYRIASIS ALBA
     Route: 061
     Dates: start: 20171128

REACTIONS (4)
  - Lupus-like syndrome [Not Recovered/Not Resolved]
  - Neutrophilic dermatosis [Unknown]
  - Skin lesion [Not Recovered/Not Resolved]
  - Urticaria [Unknown]

NARRATIVE: CASE EVENT DATE: 20180701
